FAERS Safety Report 7230902-2 (Version None)
Quarter: 2011Q1

REPORT INFORMATION
  Report Type: 
  Country: None (occurrence: None)
  Receive Date: 20110118
  Receipt Date: 20101228
  Transmission Date: 20110831
  Serious: Yes (Hospitalization)
  Sender: FDA-Public Use
  Company Number: FR-JNJFOC-20110103534

PATIENT
  Sex: Female

DRUGS (6)
  1. STABLON [Suspect]
     Indication: PRODUCT USED FOR UNKNOWN INDICATION
     Route: 048
  2. IMOVANE [Concomitant]
  3. XANAX [Concomitant]
  4. NORSET [Concomitant]
  5. ACETAMINOPHEN AND TRAMADOL HCL [Suspect]
     Indication: PAIN
     Route: 048
  6. EQUANIL [Concomitant]

REACTIONS (1)
  - GAIT DISTURBANCE [None]
